FAERS Safety Report 9996021 (Version 1)
Quarter: 2014Q1

REPORT INFORMATION
  Report Type: Spontaneous
  Country: RU (occurrence: RU)
  Receive Date: 20140311
  Receipt Date: 20140311
  Transmission Date: 20141002
  Serious: Yes (Other)
  Sender: FDA-Public Use
  Company Number: RU-JNJFOC-20140216564

PATIENT
  Age: 24 Year
  Sex: Male

DRUGS (2)
  1. REMICADE [Suspect]
     Indication: ANKYLOSING SPONDYLITIS
     Dosage: 300-400 MG PER INFUSION (ALSO REPORTED AS 5 MG/KG)
     Route: 042
     Dates: start: 200812, end: 2011
  2. REMICADE [Suspect]
     Indication: ANKYLOSING SPONDYLITIS
     Route: 042
     Dates: start: 201110

REACTIONS (2)
  - Drug ineffective [Recovering/Resolving]
  - Uveitis [Recovering/Resolving]
